FAERS Safety Report 13773327 (Version 2)
Quarter: 2017Q3

REPORT INFORMATION
  Report Type: Spontaneous
  Country: US (occurrence: US)
  Receive Date: 20170720
  Receipt Date: 20170810
  Transmission Date: 20171127
  Serious: Yes (Other)
  Sender: FDA-Public Use
  Company Number: US-COLGATE PALMOLIVE COMPANY-20170700546

PATIENT

DRUGS (3)
  1. COLGATE TOTAL ADVANCED CLEAN [Suspect]
     Active Substance: SODIUM FLUORIDE\TRICLOSAN
     Indication: DENTAL DISORDER PROPHYLAXIS
     Dosage: BRUSHING 4-5 TIMES DAILY USING APPLYING PASTE TO HALF OR MORE OF THE BRISTLES
     Route: 048
     Dates: start: 2002, end: 20170623
  2. COLGATE TOTAL ADVANCED WHITENING [Suspect]
     Active Substance: SODIUM FLUORIDE\TRICLOSAN
     Indication: DENTAL DISORDER PROPHYLAXIS
     Dosage: SHE REPORTS BRUSHING 4-5 TIMES DAILY USING APPLYING PASTE TO HALF OR MORE OF THE BRISTLES.
     Route: 048
     Dates: start: 2002, end: 20170623
  3. COL TP SENSITIVE UNSPECIFIED [Suspect]
     Active Substance: POTASSIUM NITRATE\SODIUM FLUORIDE
     Indication: DENTAL DISORDER PROPHYLAXIS
     Dosage: TID FOR THREE DAYS
     Dates: start: 2016, end: 2016

REACTIONS (26)
  - Vulval disorder [Unknown]
  - Mouth haemorrhage [Recovered/Resolved]
  - Toothache [Recovered/Resolved]
  - Oral infection [Unknown]
  - Oral pustule [Unknown]
  - Oral mucosal blistering [Recovered/Resolved]
  - Sputum increased [Recovered/Resolved]
  - Product quality issue [Unknown]
  - Weight decreased [Unknown]
  - Oral mucosal erythema [Recovered/Resolved]
  - Gingivitis [Recovered/Resolved]
  - Sexual relationship change [Unknown]
  - Feeding disorder [Recovered/Resolved]
  - Gingival disorder [Recovered/Resolved]
  - Bone loss [Not Recovered/Not Resolved]
  - Dyspepsia [Recovered/Resolved]
  - Anxiety [Recovered/Resolved]
  - Loose tooth [Recovered/Resolved]
  - Oral discomfort [Recovered/Resolved]
  - Burn oesophageal [Recovered/Resolved]
  - Malaise [Recovered/Resolved]
  - Tonsillitis [Recovered/Resolved]
  - Tooth fracture [Recovered/Resolved]
  - Asthenia [Recovered/Resolved]
  - Cough [Recovered/Resolved]
  - Allergy to metals [Recovered/Resolved]

NARRATIVE: CASE EVENT DATE: 20160929
